FAERS Safety Report 8599747-5 (Version None)
Quarter: 2012Q3

REPORT INFORMATION
  Report Type: 
  Country: None (occurrence: None)
  Receive Date: 20120816
  Receipt Date: 20120813
  Transmission Date: 20120928
  Serious: Yes (Hospitalization, Other)
  Sender: FDA-Public Use
  Company Number: FR-ABBOTT-12P-056-0967490-00

PATIENT
  Sex: Female

DRUGS (12)
  1. ATENOLOL [Suspect]
     Indication: PRODUCT USED FOR UNKNOWN INDICATION
     Route: 048
     Dates: start: 20120611
  2. METRONIDAZOLE [Concomitant]
     Indication: PRODUCT USED FOR UNKNOWN INDICATION
     Dosage: HALF LIFE = 8 H - 10H
     Dates: start: 20120611, end: 20120612
  3. TARGOCID [Suspect]
     Indication: PRODUCT USED FOR UNKNOWN INDICATION
     Route: 048
     Dates: start: 20120613, end: 20120626
  4. PAROXETINE [Suspect]
     Indication: PRODUCT USED FOR UNKNOWN INDICATION
     Route: 048
     Dates: start: 20120613, end: 20120626
  5. TEICOPLANINE [Concomitant]
     Indication: PRODUCT USED FOR UNKNOWN INDICATION
     Dates: start: 20120613, end: 20120626
  6. LOVENOX [Suspect]
     Indication: PRODUCT USED FOR UNKNOWN INDICATION
     Route: 058
     Dates: start: 20120613
  7. CEFTRIAXONE [Concomitant]
     Indication: PRODUCT USED FOR UNKNOWN INDICATION
     Dosage: HALF LIFE = 8 H
     Dates: start: 20120611, end: 20120612
  8. VANCOMYCIN [Concomitant]
     Indication: PRODUCT USED FOR UNKNOWN INDICATION
     Dosage: HALF LIFE = 3 H - 13 H
     Dates: start: 20120612, end: 20120613
  9. ATARAX [Suspect]
     Indication: PRODUCT USED FOR UNKNOWN INDICATION
     Route: 048
     Dates: start: 20120611, end: 20120615
  10. GENTAMICIN [Concomitant]
     Indication: PRODUCT USED FOR UNKNOWN INDICATION
     Dosage: HALF LIFE = ABOUT 2 H
     Dates: start: 20120612, end: 20120613
  11. CREON [Suspect]
     Indication: PRODUCT USED FOR UNKNOWN INDICATION
     Dosage: 2DFX 1/DAY
     Route: 048
     Dates: start: 20120611
  12. EFFEXOR [Suspect]
     Indication: DEPRESSION
     Route: 048
     Dates: start: 20120701

REACTIONS (2)
  - ADENOCARCINOMA PANCREAS [None]
  - VASCULAR PURPURA [None]
